FAERS Safety Report 13313643 (Version 1)
Quarter: 2017Q1

REPORT INFORMATION
  Report Type: Spontaneous
  Country: US (occurrence: US)
  Receive Date: 20170309
  Receipt Date: 20170309
  Transmission Date: 20170428
  Serious: Yes (Death, Hospitalization)
  Sender: FDA-Public Use
  Company Number: US-GE HEALTHCARE LIFE SCIENCES-OMPQ-PR-1610S-1989

PATIENT
  Age: 86 Year
  Sex: Male
  Weight: 76.3 kg

DRUGS (22)
  1. LOVENOX [Concomitant]
     Active Substance: ENOXAPARIN SODIUM
     Dosage: 40 MG, QD
     Route: 058
  2. LISINOPRIL. [Concomitant]
     Active Substance: LISINOPRIL
     Dosage: 2.5 MG, QD
     Route: 048
  3. HEPARIN [Concomitant]
     Active Substance: HEPARIN SODIUM
     Dosage: 5000 UNITS
     Route: 013
     Dates: start: 20161010, end: 20161010
  4. VERAPAMIL [Concomitant]
     Active Substance: VERAPAMIL HYDROCHLORIDE
     Dosage: 2.6 MG, SINGLE
     Route: 013
     Dates: start: 20161010, end: 20161010
  5. VITAMIN B [Concomitant]
     Active Substance: VITAMIN B
     Dosage: 1 TAB, QD
     Route: 048
  6. ISOSORBIDE MONONITRATE. [Concomitant]
     Active Substance: ISOSORBIDE MONONITRATE
     Dosage: 30 MG, QD
     Route: 048
  7. LOPRESSOR [Concomitant]
     Active Substance: METOPROLOL TARTRATE
     Dosage: 25 MG, BID
     Route: 048
  8. PRIMIDONE. [Concomitant]
     Active Substance: PRIMIDONE
     Dosage: 50 MG, QD
     Route: 048
  9. NITROGLYCERIN. [Concomitant]
     Active Substance: NITROGLYCERIN
     Dosage: 200 MCG, SINGLE
     Route: 013
     Dates: start: 20161010, end: 20161010
  10. NITROGLYCERIN. [Concomitant]
     Active Substance: NITROGLYCERIN
     Dosage: 0.4 MG, SINGLE AT 11:26
     Route: 060
     Dates: start: 20161010, end: 20161010
  11. OMNIPAQUE [Suspect]
     Active Substance: IOHEXOL
     Indication: CHEST PAIN
     Dosage: 50 ML, SINGLE
     Route: 013
     Dates: start: 20161010, end: 20161010
  12. OMNIPAQUE [Suspect]
     Active Substance: IOHEXOL
     Indication: ACUTE MYOCARDIAL INFARCTION
  13. PLAVIX PLUS [Concomitant]
     Dosage: 75 MG, QD
     Route: 048
  14. BUSPIRONE [Concomitant]
     Active Substance: BUSPIRONE HYDROCHLORIDE
     Dosage: 7.5 MG, QD
     Route: 048
  15. LASIX [Concomitant]
     Active Substance: FUROSEMIDE
     Dosage: UNK
     Route: 042
     Dates: start: 20161007
  16. PROTONIX                           /00661201/ [Concomitant]
     Active Substance: OMEPRAZOLE
     Dosage: 40 MG, QD
     Route: 048
  17. FENTANYL. [Concomitant]
     Active Substance: FENTANYL
     Dosage: 50 MCG, SINGLE AT 11:09
     Route: 042
     Dates: start: 20161010, end: 20161010
  18. VERSED [Concomitant]
     Active Substance: MIDAZOLAM HYDROCHLORIDE
     Dosage: 1 MG, SINGLE
     Dates: start: 20161010, end: 20161010
  19. FENTANYL. [Concomitant]
     Active Substance: FENTANYL
     Dosage: 25 MCG, SINGLE AT 11:29
     Route: 042
     Dates: start: 20161010, end: 20161010
  20. ASPIRIN 81 [Concomitant]
     Active Substance: ASPIRIN
     Dosage: 81 MG, QD
     Route: 048
  21. RED BLOOD CELLS [Concomitant]
     Active Substance: HUMAN RED BLOOD CELL
  22. VIBRAMYCIN [Concomitant]
     Active Substance: DOXYCYCLINE

REACTIONS (4)
  - Haemolytic anaemia [Fatal]
  - Contrast media reaction [Fatal]
  - Arthralgia [Unknown]
  - Abdominal pain [Unknown]

NARRATIVE: CASE EVENT DATE: 20161010
